FAERS Safety Report 8445891-2 (Version None)
Quarter: 2012Q2

REPORT INFORMATION
  Report Type: 
  Country: None (occurrence: None)
  Receive Date: 20120618
  Receipt Date: 20120605
  Transmission Date: 20120825
  Serious: Yes (Other)
  Sender: FDA-Public Use
  Company Number: ES-VERTEX PHARMACEUTICALS INC.-000000000000000910

PATIENT
  Age: 49 Year
  Sex: Female

DRUGS (4)
  1. PEGINTERFERON ALFA-2A [Concomitant]
     Indication: HEPATITIS C
     Route: 065
     Dates: start: 20120201
  2. RIBAVIRIN [Concomitant]
  3. RIBAVIRIN [Concomitant]
     Indication: HEPATITIS C
  4. TELAPREVIR [Suspect]
     Indication: HEPATITIS C
     Dosage: DOSAGE FORM: TABLET
     Route: 048
     Dates: start: 20120201

REACTIONS (5)
  - NAUSEA [None]
  - DEPRESSION [None]
  - PRURITUS [None]
  - ANAEMIA [None]
  - VOMITING [None]
